FAERS Safety Report 5808103-1 (Version None)
Quarter: 2008Q3

REPORT INFORMATION
  Report Type: 
  Country: None (occurrence: None)
  Receive Date: 20080708
  Receipt Date: 20080624
  Transmission Date: 20090109
  Serious: Yes (Hospitalization)
  Sender: FDA-Public Use
  Company Number: 08P-028-0459757-00

PATIENT
  Age: 2 Year
  Sex: Female

DRUGS (2)
  1. SYNAGIS INJECTION (PAIVIZUMAB) (PALIVIZUMAB) [Suspect]
     Indication: ANTIVIRAL PROPHYLAXIS
     Dosage: 113 MG, INTRAMUSCULAR
     Route: 030
     Dates: start: 20080114, end: 20080114
  2. SYNAGIS INJECTION (PAIVIZUMAB) (PALIVIZUMAB) [Suspect]
     Indication: ANTIVIRAL PROPHYLAXIS
     Dosage: 113 MG, INTRAMUSCULAR
     Route: 030
     Dates: start: 20080204, end: 20080204

REACTIONS (1)
  - PNEUMONIA [None]
